FAERS Safety Report 11110444 (Version 26)
Quarter: 2016Q4

REPORT INFORMATION
  Report Type: Spontaneous
  Country: US (occurrence: US)
  Receive Date: 20150513
  Receipt Date: 20161109
  Transmission Date: 20170206
  Serious: Yes (Hospitalization)
  Sender: FDA-Public Use
  Company Number: US-GILEAD-2015-0153163

PATIENT
  Age: 47 Year
  Sex: Female

DRUGS (30)
  1. FLOLAN [Suspect]
     Active Substance: EPOPROSTENOL SODIUM
     Indication: PULMONARY ARTERIAL HYPERTENSION
     Dosage: 8 NG/KG/MIN CONTINUOUSLY
     Route: 042
  2. FLOLAN [Suspect]
     Active Substance: EPOPROSTENOL SODIUM
     Dosage: 42 DF, CO
     Route: 042
  3. FLOLAN [Suspect]
     Active Substance: EPOPROSTENOL SODIUM
     Dosage: 43 NG/KG/MIN
     Route: 042
     Dates: start: 20150501
  4. FLOLAN [Suspect]
     Active Substance: EPOPROSTENOL SODIUM
     Dosage: 16 NG/KG/MIN
     Route: 042
  5. ADCIRCA [Concomitant]
     Active Substance: TADALAFIL
  6. FLOLAN [Suspect]
     Active Substance: EPOPROSTENOL SODIUM
     Dosage: UNK
     Route: 042
  7. FLOLAN [Suspect]
     Active Substance: EPOPROSTENOL SODIUM
     Dosage: UNK
     Route: 042
  8. FLOLAN [Suspect]
     Active Substance: EPOPROSTENOL SODIUM
     Dosage: 15 NG/KG/MIN
     Route: 042
     Dates: start: 20150501
  9. FLOLAN [Suspect]
     Active Substance: EPOPROSTENOL SODIUM
     Dosage: 42 DF, CO
     Route: 042
  10. FLOLAN [Suspect]
     Active Substance: EPOPROSTENOL SODIUM
     Indication: PULMONARY ARTERIAL HYPERTENSION
     Dosage: 8 NG/KG/MIN, CO
     Route: 042
     Dates: start: 20150501
  11. FLOLAN [Suspect]
     Active Substance: EPOPROSTENOL SODIUM
     Dosage: 1.5 MG/ 1 ML
     Route: 042
  12. FLOLAN [Suspect]
     Active Substance: EPOPROSTENOL SODIUM
     Dosage: 27.6 NG/KG/MIN CONTINUOUSLY
     Route: 042
  13. FLOLAN [Suspect]
     Active Substance: EPOPROSTENOL SODIUM
     Dosage: 42 NG/KG/MIN
     Route: 042
     Dates: start: 20150501
  14. FLOLAN [Suspect]
     Active Substance: EPOPROSTENOL SODIUM
     Dosage: 8 NG/KG/MIN CONTINUOUSLY
     Route: 042
  15. FLOLAN [Suspect]
     Active Substance: EPOPROSTENOL SODIUM
     Dosage: 10 NG/KG/MIN CONTINUOUSLY
     Route: 042
     Dates: start: 20150501
  16. FLOLAN [Suspect]
     Active Substance: EPOPROSTENOL SODIUM
     Dosage: 34 DF CONTINUOUSLY
     Route: 042
     Dates: start: 20150501
  17. FLOLAN [Suspect]
     Active Substance: EPOPROSTENOL SODIUM
     Dosage: 26 NG/KG/MIN
     Route: 042
  18. ADEMPAS [Concomitant]
     Active Substance: RIOCIGUAT
  19. AMBRISENTAN [Suspect]
     Active Substance: AMBRISENTAN
     Indication: PRODUCT USED FOR UNKNOWN INDICATION
     Dosage: UNK
     Route: 065
  20. FLOLAN [Suspect]
     Active Substance: EPOPROSTENOL SODIUM
     Dosage: 8 NG/KG/MIN CONTINUOUSLY
     Route: 042
     Dates: start: 20150501
  21. FLOLAN [Suspect]
     Active Substance: EPOPROSTENOL SODIUM
     Dosage: 18 DF, UNK
     Route: 042
     Dates: start: 20150501
  22. FLOLAN [Suspect]
     Active Substance: EPOPROSTENOL SODIUM
     Dosage: 16 NG/KG/MIN CONTINUOUSLY
     Route: 042
  23. FLOLAN [Suspect]
     Active Substance: EPOPROSTENOL SODIUM
     Dosage: 26 NG/KG/MIN CONTINUOUSLY
     Route: 042
  24. FLOLAN [Suspect]
     Active Substance: EPOPROSTENOL SODIUM
     Dosage: UNK
     Route: 042
     Dates: start: 20150501
  25. FLOLAN [Suspect]
     Active Substance: EPOPROSTENOL SODIUM
     Dosage: 1.5 MG/ 1 ML
     Route: 042
  26. FLOLAN [Suspect]
     Active Substance: EPOPROSTENOL SODIUM
     Dosage: 27.6 NG/KG/MIN CONTINUOUSLY
     Route: 042
  27. OPSUMIT [Concomitant]
     Active Substance: MACITENTAN
  28. FLOLAN [Suspect]
     Active Substance: EPOPROSTENOL SODIUM
     Dosage: 8 NG/KG/MIN CONTINUOUSLY
     Route: 042
     Dates: start: 20150501
  29. FLOLAN [Suspect]
     Active Substance: EPOPROSTENOL SODIUM
     Dosage: UNK
     Route: 042
  30. COUMADIN [Concomitant]
     Active Substance: WARFARIN SODIUM

REACTIONS (29)
  - Pain in extremity [Unknown]
  - Diarrhoea [Unknown]
  - Device alarm issue [Unknown]
  - Nasopharyngitis [Unknown]
  - Asthenia [Not Recovered/Not Resolved]
  - Catheter site inflammation [Unknown]
  - Sensory disturbance [Unknown]
  - Sensory loss [Unknown]
  - Headache [Not Recovered/Not Resolved]
  - Nausea [Unknown]
  - Dyspnoea [Unknown]
  - Catheter site related reaction [Unknown]
  - Weight decreased [Unknown]
  - Device use error [Unknown]
  - Rash [Not Recovered/Not Resolved]
  - Cough [Unknown]
  - Malaise [Unknown]
  - Decreased appetite [Unknown]
  - Heart rate abnormal [Unknown]
  - Complication associated with device [Unknown]
  - Anaemia [Unknown]
  - Catheter site rash [Unknown]
  - Device leakage [Unknown]
  - Fatigue [Not Recovered/Not Resolved]
  - Oedema peripheral [Unknown]
  - Oxygen saturation decreased [Unknown]
  - Catheter site haemorrhage [Recovered/Resolved]
  - Erythema [Not Recovered/Not Resolved]
  - Catheter site pruritus [Unknown]

NARRATIVE: CASE EVENT DATE: 2015
